FAERS Safety Report 10932878 (Version 1)
Quarter: 2015Q1

REPORT INFORMATION
  Report Type: Spontaneous
  Country: BR (occurrence: BR)
  Receive Date: 20150320
  Receipt Date: 20150320
  Transmission Date: 20150721
  Serious: Yes (Other)
  Sender: FDA-Public Use
  Company Number: BR-DSJP-DSU-2015-108643

PATIENT

DRUGS (3)
  1. MODURETIC 5-50 [Concomitant]
     Active Substance: AMILORIDE HYDROCHLORIDE\HYDROCHLOROTHIAZIDE
     Indication: DIURETIC THERAPY
     Dosage: 25/2.5 MG
     Route: 048
  2. NEBLOCK [Concomitant]
     Indication: HYPERTENSION
     Dosage: 1 DF, QD
     Route: 048
  3. OLMETEC ANLO 40/5 [Suspect]
     Active Substance: AMLODIPINE BESYLATE\OLMESARTAN MEDOXOMIL
     Indication: HYPERTENSION
     Dosage: 5/40 MG, QD
     Route: 048
     Dates: start: 20140623

REACTIONS (4)
  - Femur fracture [Unknown]
  - Fall [Unknown]
  - Osteoarthritis [Unknown]
  - Weight increased [Unknown]
